FAERS Safety Report 7788856-6 (Version None)
Quarter: 2011Q3

REPORT INFORMATION
  Report Type: 
  Country: None (occurrence: None)
  Receive Date: 20110928
  Receipt Date: 20110913
  Transmission Date: 20111222
  Serious: Yes (Hospitalization)
  Sender: FDA-Public Use
  Company Number: AUR-APL-2011-05063

PATIENT
  Age: 81 Year
  Sex: Male

DRUGS (13)
  1. RASAGILINE [Suspect]
     Indication: PARKINSON'S DISEASE
     Dosage: 1 MG (1 MG,1 IN 1 D),ORAL
     Route: 048
     Dates: start: 20091001
  2. MIDODRINE HYDROCHLORIDE [Concomitant]
  3. PIPERACILLIN AND TAZOBACTAM (PIP/TAZO) [Concomitant]
  4. STALEVO 100 [Concomitant]
  5. ALENDRONATE SODIUM [Concomitant]
  6. FINASTERIDE [Concomitant]
  7. CITALOPRAM HYDROBROMIDE [Suspect]
     Indication: PRODUCT USED FOR UNKNOWN INDICATION
     Dosage: 10 MG (10 MG,1 IN 1 D),ORAL
     Route: 048
  8. CALCIUM AND COLECALCIFEROL (LEKOVIT CA) [Concomitant]
  9. OMEPRAZOLE [Concomitant]
  10. ACETAMINOPHEN [Concomitant]
  11. DALTEPARIN SODIUM [Concomitant]
  12. ROPINIROLE [Concomitant]
  13. NULYTELY [Concomitant]

REACTIONS (8)
  - HYPERPYREXIA [None]
  - MUSCLE RIGIDITY [None]
  - NEUROLEPTIC MALIGNANT SYNDROME [None]
  - HYPERTONIA [None]
  - SEROTONIN SYNDROME [None]
  - HYPERHIDROSIS [None]
  - DRUG WITHDRAWAL SYNDROME [None]
  - BLOOD CREATINE PHOSPHOKINASE INCREASED [None]
